FAERS Safety Report 5301652-4 (Version None)
Quarter: 2007Q2

REPORT INFORMATION
  Report Type: 
  Country: None (occurrence: None)
  Receive Date: 20070419
  Receipt Date: 20070410
  Transmission Date: 20071010
  Serious: Yes (Other)
  Sender: FDA-Public Use
  Company Number: PHBS2007JP02755

PATIENT
  Age: 61 Year
  Sex: Female

DRUGS (3)
  1. ZOMETA [Suspect]
     Indication: METASTASES TO BONE
     Dosage: 4 MG/DAY
     Route: 042
     Dates: start: 20060802, end: 20070124
  2. AREDIA [Suspect]
     Indication: METASTASES TO BONE
     Dosage: 45 MG/DAY
     Route: 042
     Dates: start: 20030704, end: 20060719
  3. ARIMIDEX [Suspect]
     Indication: HORMONE REPLACEMENT THERAPY
     Dosage: 1 MG/DAY
     Route: 048
     Dates: start: 20030619

REACTIONS (10)
  - BONE DISORDER [None]
  - BONE EROSION [None]
  - COMPUTERISED TOMOGRAM ABNORMAL [None]
  - FRACTURE [None]
  - GINGIVAL SWELLING [None]
  - MOUTH ULCERATION [None]
  - OSTEONECROSIS [None]
  - PURULENT DISCHARGE [None]
  - TOOTH EXTRACTION [None]
  - WOUND DEBRIDEMENT [None]
